FAERS Safety Report 5862440-3 (Version None)
Quarter: 2008Q3

REPORT INFORMATION
  Report Type: 
  Country: None (occurrence: None)
  Receive Date: 20080827
  Receipt Date: 20080827
  Transmission Date: 20090109
  Serious: Yes (Hospitalization)
  Sender: FDA-Public Use
  Company Number: None

PATIENT
  Sex: Male
  Weight: 79.3795 kg

DRUGS (7)
  1. XELODA [Suspect]
     Indication: COLON CANCER METASTATIC
     Dosage: XELODA DAILY X 14 DAYS PO
     Route: 048
     Dates: start: 20080509
  2. ERBITUX [Suspect]
     Indication: COLON CANCER METASTATIC
     Dosage: Q WEEK IV
     Route: 042
     Dates: start: 20080509
  3. OXALIPLATIN [Suspect]
     Dosage: 130MG/M2 IV Q3WK
     Route: 042
  4. AVASTIN [Suspect]
     Dosage: 7.5MG/KG IV Q3WK
     Route: 042
  5. NEXIUM [Concomitant]
  6. SENNA [Concomitant]
  7. TETRACYCLINE [Concomitant]

REACTIONS (4)
  - BLOOD AMYLASE INCREASED [None]
  - BLOOD BILIRUBIN INCREASED [None]
  - GALLBLADDER DISORDER [None]
  - LIPASE INCREASED [None]
